FAERS Safety Report 9930697 (Version 1)
Quarter: 2014Q1

REPORT INFORMATION
  Report Type: Spontaneous
  Country: US (occurrence: US)
  Receive Date: 20140227
  Receipt Date: 20140227
  Transmission Date: 20141002
  Serious: No
  Sender: FDA-Public Use
  Company Number: US-AMGEN-USASP2014000265

PATIENT
  Age: 45 Year
  Sex: Female
  Weight: 136.5 kg

DRUGS (7)
  1. ENBREL [Suspect]
     Indication: PRODUCT USED FOR UNKNOWN INDICATION
     Dosage: 50 MG, QWK
     Route: 058
  2. METHOTREXATE [Concomitant]
     Dosage: 2.5 MG, UNK
  3. PREDNISONE [Concomitant]
     Dosage: 1 MG, UNK
  4. HYDROXYCHLOROQUINE [Concomitant]
     Dosage: 200 MG, UNK
  5. CELEXA                             /00582602/ [Concomitant]
     Dosage: 10 MG, UNK
  6. VITAMIN D                          /00107901/ [Concomitant]
     Dosage: 1000 UNIT, UNK
  7. FOLIC ACID [Concomitant]
     Dosage: UNK

REACTIONS (1)
  - Drug ineffective [Unknown]
